FAERS Safety Report 5931948-4 (Version None)
Quarter: 2008Q4

REPORT INFORMATION
  Report Type: 
  Country: None (occurrence: None)
  Receive Date: 20081027
  Receipt Date: 20081021
  Transmission Date: 20090506
  Serious: Yes (Other)
  Sender: FDA-Public Use
  Company Number: PHHY2008GB25810

PATIENT
  Age: 47 Year
  Sex: Male

DRUGS (2)
  1. TEGRETOL [Suspect]
     Dosage: 800 MG
  2. TEGRETOL [Suspect]
     Dosage: 100MG

REACTIONS (1)
  - URINARY INCONTINENCE [None]
